FAERS Safety Report 7278525-3 (Version None)
Quarter: 2011Q1

REPORT INFORMATION
  Report Type: 
  Country: None (occurrence: None)
  Receive Date: 20110207
  Receipt Date: 20110131
  Transmission Date: 20110831
  Serious: Yes (Other)
  Sender: FDA-Public Use
  Company Number: US-PERRIGO-11US000828

PATIENT
  Sex: Male
  Weight: 15.873 kg

DRUGS (2)
  1. ACETAMINOPHEN [Suspect]
     Indication: PYREXIA
     Dosage: 160 MG, SINGLE
     Route: 048
     Dates: start: 20110127, end: 20110127
  2. ACETAMINOPHEN [Suspect]
     Dosage: 3280 MG, SINGLE
     Route: 048
     Dates: start: 20110127, end: 20110127

REACTIONS (4)
  - SOMNOLENCE [None]
  - VOMITING [None]
  - ACCIDENTAL OVERDOSE [None]
  - ANALGESIC DRUG LEVEL INCREASED [None]
